FAERS Safety Report 9656102 (Version 1)
Quarter: 2013Q4

REPORT INFORMATION
  Report Type: Spontaneous
  Country: AU (occurrence: AU)
  Receive Date: 20131030
  Receipt Date: 20131030
  Transmission Date: 20140711
  Serious: Yes (Hospitalization, Other)
  Sender: FDA-Public Use
  Company Number: PHHY2013AU122268

PATIENT
  Sex: Female

DRUGS (2)
  1. ESTRADOT [Suspect]
     Indication: HOT FLUSH
     Dosage: UNK UKN, UNK
     Route: 062
  2. ESTRADOT [Suspect]
     Indication: NIGHT SWEATS
     Dosage: UNK UKN, UNK
     Route: 062

REACTIONS (5)
  - Posterior reversible encephalopathy syndrome [Not Recovered/Not Resolved]
  - Brain oedema [Not Recovered/Not Resolved]
  - Amnesia [Not Recovered/Not Resolved]
  - Hypertension [Not Recovered/Not Resolved]
  - Headache [Not Recovered/Not Resolved]
